FAERS Safety Report 7500300-2 (Version None)
Quarter: 2011Q2

REPORT INFORMATION
  Report Type: 
  Country: None (occurrence: None)
  Receive Date: 20110524
  Receipt Date: 20100502
  Transmission Date: 20111010
  Serious: No
  Sender: FDA-Public Use
  Company Number: US-NOVEN-ALL1-2010-02584

PATIENT

DRUGS (2)
  1. LEXAPRO [Concomitant]
     Dosage: 10 MG, 1X/DAY:QD
     Route: 048
     Dates: start: 20040101
  2. DAYTRANA [Suspect]
     Dosage: 30 MG, 1X/DAY:QD
     Route: 062
     Dates: start: 20100301

REACTIONS (2)
  - APPLICATION SITE IRRITATION [None]
  - OFF LABEL USE [None]
